FAERS Safety Report 7472971-0 (Version None)
Quarter: 2011Q2

REPORT INFORMATION
  Report Type: 
  Country: None (occurrence: None)
  Receive Date: 20110511
  Receipt Date: 20110427
  Transmission Date: 20111010
  Serious: Yes (Other)
  Sender: FDA-Public Use
  Company Number: PHHY2011ES35461

PATIENT
  Age: 34 Year
  Sex: Female

DRUGS (2)
  1. TEGRETOL [Suspect]
     Indication: EPILEPSY
     Dosage: 900 MG, DAILY
     Route: 048
     Dates: start: 20050101
  2. ROMILAR [Interacting]
     Indication: COUGH
     Dosage: UNK UKN, UNK
     Dates: start: 20110310, end: 20110317

REACTIONS (2)
  - CONVULSION [None]
  - DRUG INTERACTION [None]
